FAERS Safety Report 25959160 (Version 1)
Quarter: 2025Q4

REPORT INFORMATION
  Report Type: Spontaneous
  Country: MX (occurrence: MX)
  Receive Date: 20251025
  Receipt Date: 20251025
  Transmission Date: 20260117
  Serious: No
  Sender: ANI
  Company Number: MX-ANIPHARMA-030983

PATIENT
  Sex: Male
  Weight: 100 kg

DRUGS (2)
  1. FLUVOXAMINE MALEATE [Suspect]
     Active Substance: FLUVOXAMINE MALEATE
     Indication: Anxiety
     Dosage: STRENGTH: 100MG, HALF PILL
     Dates: start: 20250318
  2. FLUVOXAMINE MALEATE [Suspect]
     Active Substance: FLUVOXAMINE MALEATE
     Indication: Mental disorder
     Dosage: STRENGTH: 100MG, HALF PILL
     Dates: start: 20250318

REACTIONS (16)
  - Cold sweat [Unknown]
  - Burning sensation [Unknown]
  - Depersonalisation/derealisation disorder [Unknown]
  - Anxiety [Unknown]
  - Panic attack [Unknown]
  - Akathisia [Unknown]
  - Hypoaesthesia [Unknown]
  - Insomnia [Unknown]
  - Tremor [Unknown]
  - Cognitive disorder [Unknown]
  - Disturbance in attention [Unknown]
  - Decreased appetite [Unknown]
  - Vision blurred [Unknown]
  - Sexual dysfunction [Unknown]
  - Emotional disorder [Unknown]
  - Withdrawal syndrome [Unknown]

NARRATIVE: CASE EVENT DATE: 20250301
